FAERS Safety Report 5658080-1 (Version None)
Quarter: 2008Q1

REPORT INFORMATION
  Report Type: 
  Country: None (occurrence: None)
  Receive Date: 20080310
  Receipt Date: 20061220
  Transmission Date: 20080703
  Serious: No
  Sender: FDA-Public Use
  Company Number: US-BAYER-200615056BCC

PATIENT
  Age: 59 Year
  Sex: Male
  Weight: 68 kg

DRUGS (2)
  1. ALEVE [Suspect]
     Indication: HEADACHE
     Dosage: UNIT DOSE: 220 MG
     Route: 048
     Dates: start: 20061220
  2. AMOXICILLIN [Concomitant]
     Indication: VIRAL INFECTION

REACTIONS (1)
  - HEADACHE [None]
